FAERS Safety Report 11012659 (Version 1)
Quarter: 2015Q2

REPORT INFORMATION
  Report Type: Spontaneous
  Country: US (occurrence: None)
  Receive Date: 20150409
  Receipt Date: 20150409
  Transmission Date: 20150821
  Serious: Yes (Other)
  Sender: FDA-Public Use
  Company Number: 2015-001

PATIENT
  Sex: Female

DRUGS (1)
  1. PSORIASIN [Suspect]
     Active Substance: COAL TAR
     Indication: PSORIASIS
     Dosage: APPLY TO AFFECTED AREA?
     Dates: start: 20150316

REACTIONS (4)
  - Burns second degree [None]
  - Burning sensation [None]
  - Bedridden [None]
  - Peripheral swelling [None]

NARRATIVE: CASE EVENT DATE: 20150316
